FAERS Safety Report 18799917 (Version 1)
Quarter: 2021Q1

REPORT INFORMATION
  Report Type: Report from Study
  Country: US (occurrence: US)
  Receive Date: 20210128
  Receipt Date: 20210128
  Transmission Date: 20210419
  Serious: Yes (Other)
  Sender: FDA-Public Use
  Company Number: US-ASTRAZENECA-2020SF59213

PATIENT
  Age: 41 Year
  Sex: Female
  Weight: 120.2 kg

DRUGS (1)
  1. FARXIGA [Suspect]
     Active Substance: DAPAGLIFLOZIN PROPANEDIOL
     Indication: DIABETES MELLITUS
     Route: 048
     Dates: start: 20200826, end: 20200914

REACTIONS (10)
  - Thirst [Recovered/Resolved]
  - Dehydration [Unknown]
  - Dizziness [Recovered/Resolved]
  - Fatigue [Recovered/Resolved]
  - Thinking abnormal [Unknown]
  - Dysstasia [Unknown]
  - Nausea [Recovered/Resolved]
  - Confusional state [Recovered/Resolved]
  - Ketoacidosis [Unknown]
  - Polyuria [Recovered/Resolved]

NARRATIVE: CASE EVENT DATE: 20200914
